FAERS Safety Report 6159538-1 (Version None)
Quarter: 2009Q2

REPORT INFORMATION
  Report Type: 
  Country: None (occurrence: None)
  Receive Date: 20090420
  Receipt Date: 20090413
  Transmission Date: 20091009
  Serious: Yes (Other)
  Sender: FDA-Public Use
  Company Number: US-JNJFOC-20090403311

PATIENT
  Sex: Male
  Weight: 72.58 kg

DRUGS (5)
  1. FENTANYL TRANSDERMAL SYSTEM [Suspect]
     Indication: BACK PAIN
     Route: 062
  2. OXYCODONE HCL [Suspect]
     Dosage: AS NEEDED
     Route: 048
  3. OXYCODONE HCL [Suspect]
     Dosage: EVERY 4 TO 5 HOURS AS NEEDED
     Route: 048
  4. OXYCODONE HCL [Suspect]
     Dosage: 5MG TWO TABLETS, EVERY 4 TO 5 HOURS AS NEEDED
     Route: 048
  5. OXYCODONE HCL [Suspect]
     Indication: BREAKTHROUGH PAIN
     Dosage: EVERY 4 TO 5 HOURS AS NEEDED
     Route: 048

REACTIONS (2)
  - DRUG ABUSER [None]
  - INCORRECT DRUG ADMINISTRATION DURATION [None]
